FAERS Safety Report 25659473 (Version 2)
Quarter: 2025Q3

REPORT INFORMATION
  Report Type: Report from Study
  Country: US (occurrence: US)
  Receive Date: 20250808
  Receipt Date: 20250822
  Transmission Date: 20251021
  Serious: Yes (Other)
  Sender: UCB
  Company Number: US-UCBSA-2025034571

PATIENT
  Sex: Female
  Weight: 54 kg

DRUGS (16)
  1. FINTEPLA [Suspect]
     Active Substance: FENFLURAMINE
     Indication: Lennox-Gastaut syndrome
     Route: 048
     Dates: start: 20250301
  2. FINTEPLA [Suspect]
     Active Substance: FENFLURAMINE
     Dosage: 2 MILLILITER, 2X/DAY (BID)
     Route: 048
     Dates: start: 202504
  3. FINTEPLA [Suspect]
     Active Substance: FENFLURAMINE
     Dosage: 3.7 MILLILITER, 2X/DAY (BID)
     Route: 048
  4. FINTEPLA [Suspect]
     Active Substance: FENFLURAMINE
     Dosage: 4.9 MILLILITER, 2X/DAY (BID)
     Route: 048
     Dates: start: 202505
  5. FINTEPLA [Suspect]
     Active Substance: FENFLURAMINE
     Dosage: 4.9 MILLILITER, 2X/DAY (BID)
     Route: 048
  6. FINTEPLA [Suspect]
     Active Substance: FENFLURAMINE
     Dates: start: 20250522
  7. VITAMIN C [Concomitant]
     Active Substance: ASCORBIC ACID
     Indication: Product used for unknown indication
  8. EPIDIOLEX [Concomitant]
     Active Substance: CANNABIDIOL
     Indication: Product used for unknown indication
     Dosage: 3 MILLILITER, 2X/DAY (BID)
     Route: 048
  9. KLONOPIN [Concomitant]
     Active Substance: CLONAZEPAM
     Indication: Product used for unknown indication
     Dosage: 1.5 MILLIGRAM, 2X/DAY (BID)
  10. DENTA 5000 PLUS [Concomitant]
     Active Substance: SODIUM FLUORIDE
     Indication: Product used for unknown indication
  11. VALTOCO [Concomitant]
     Active Substance: DIAZEPAM
     Indication: Seizure
  12. VITAMIN D2 [Concomitant]
     Active Substance: ERGOCALCIFEROL
     Indication: Product used for unknown indication
     Route: 048
  13. FELBATOL [Concomitant]
     Active Substance: FELBAMATE
     Indication: Product used for unknown indication
  14. LAMICTAL [Concomitant]
     Active Substance: LAMOTRIGINE
     Indication: Product used for unknown indication
     Dosage: 150 MILLIGRAM, 2X/DAY (BID)
  15. VITAMINS [Concomitant]
     Active Substance: VITAMINS
     Indication: Product used for unknown indication
  16. ZOLOFT [Concomitant]
     Active Substance: SERTRALINE HYDROCHLORIDE
     Indication: Product used for unknown indication

REACTIONS (5)
  - Seizure [Unknown]
  - Craniofacial fracture [Unknown]
  - Somnolence [Not Recovered/Not Resolved]
  - Weight increased [Not Recovered/Not Resolved]
  - Fatigue [Not Recovered/Not Resolved]

NARRATIVE: CASE EVENT DATE: 20250101
